APPROVED DRUG PRODUCT: OCUCLEAR
Active Ingredient: OXYMETAZOLINE HYDROCHLORIDE
Strength: 0.025%
Dosage Form/Route: SOLUTION/DROPS;OPHTHALMIC
Application: N018471 | Product #001
Applicant: BAYER HEALTHCARE LLC
Approved: May 30, 1986 | RLD: No | RS: No | Type: DISCN